FAERS Safety Report 22830991 (Version 8)
Quarter: 2025Q2

REPORT INFORMATION
  Report Type: Report from Study
  Country: US (occurrence: US)
  Receive Date: 20230817
  Receipt Date: 20250407
  Transmission Date: 20250716
  Serious: Yes (Other)
  Sender: UCB
  Company Number: US-UCBSA-2023040793

PATIENT
  Age: 6 Year
  Sex: Male
  Weight: 22 kg

DRUGS (3)
  1. FINTEPLA [Suspect]
     Active Substance: FENFLURAMINE
     Indication: Severe myoclonic epilepsy of infancy
     Dosage: 1.6 ML ORALLY EVERY MORNING AND 1.8 ML EVERY NIGHT (7.48 MILLIGRAM/DAY)
     Route: 048
     Dates: start: 20220309
  2. FINTEPLA [Suspect]
     Active Substance: FENFLURAMINE
     Dosage: 1.6 ML BY MOUTH EVERY MORNING AND 1.8 ML EVERY NIGHT
     Route: 048
  3. FINTEPLA [Suspect]
     Active Substance: FENFLURAMINE
     Dosage: 6 ML (3.52 MG) BY MOUTH EVERY MORNING AND 1.8 ML (3.96 MG) EVERY EVENING.

REACTIONS (4)
  - Aortic valve incompetence [Not Recovered/Not Resolved]
  - Aortic dilatation [Not Recovered/Not Resolved]
  - Dilatation ventricular [Unknown]
  - Off label use [Unknown]

NARRATIVE: CASE EVENT DATE: 20220309
